FAERS Safety Report 5824522-1 (Version None)
Quarter: 2008Q3

REPORT INFORMATION
  Report Type: 
  Country: None (occurrence: None)
  Receive Date: 20080728
  Receipt Date: 20080717
  Transmission Date: 20090109
  Serious: Yes (Hospitalization)
  Sender: FDA-Public Use
  Company Number: US-WYE-H04639708

PATIENT
  Sex: Male
  Weight: 82.63 kg

DRUGS (20)
  1. PRISTIQ [Suspect]
     Indication: MAJOR DEPRESSION
     Route: 048
     Dates: start: 20080609, end: 20080609
  2. LOPRESSOR [Concomitant]
     Dates: start: 20080515
  3. PREDNISONE [Concomitant]
     Dates: start: 20080108
  4. PREDNISONE [Concomitant]
     Dates: start: 20080108
  5. PREDNISONE [Concomitant]
     Dates: start: 20080428
  6. NORVASC [Concomitant]
     Dates: start: 20080108
  7. LASIX [Concomitant]
     Dates: start: 20080108
  8. FOSAMAX [Concomitant]
     Dates: start: 20080108
  9. COZAAR [Concomitant]
     Dates: start: 20080108
  10. COUMADIN [Concomitant]
     Dates: start: 20080108
  11. CLONIDINE [Concomitant]
     Dates: start: 20080108
  12. ACIPHEX [Concomitant]
     Dates: start: 20070820
  13. IRON [Concomitant]
     Dosage: 50 MCG EACH DAY
     Dates: start: 20070327
  14. CALCIUM CARBONATE [Concomitant]
     Dates: start: 20070108
  15. CENTRUM SILVER [Concomitant]
     Dates: start: 20070108
  16. ACETYLSALICYLIC ACID SRT [Concomitant]
     Dates: start: 20070108
  17. AMBIEN [Concomitant]
     Dosage: 20 MG AT BEDTIME AS NEEDED
     Dates: start: 20080421
  18. NITROGLYCERIN [Concomitant]
     Dosage: 0.4 MG EVERY 5 MINUTES PRN
     Route: 060
     Dates: start: 20040117
  19. CLINDAMYCIN [Concomitant]
  20. AMITRIPTYLINE HCL [Concomitant]
     Dates: start: 20080606

REACTIONS (5)
  - ASTHENIA [None]
  - CONVULSION [None]
  - HYPONATRAEMIA [None]
  - RENAL FAILURE [None]
  - SPINAL FRACTURE [None]
